FAERS Safety Report 19089301 (Version 3)
Quarter: 2021Q4

REPORT INFORMATION
  Report Type: Report from Study
  Country: KE (occurrence: KE)
  Receive Date: 20210403
  Receipt Date: 20211228
  Transmission Date: 20220303
  Serious: Yes (Life-Threatening, Hospitalization, Other)
  Sender: FDA-Public Use
  Company Number: KE-CIPLA LTD.-2021KE02497

PATIENT

DRUGS (6)
  1. LOPINAVIR\RITONAVIR [Suspect]
     Active Substance: LOPINAVIR\RITONAVIR
     Indication: HIV infection
     Dosage: 160/40 MG, BID
     Route: 048
     Dates: start: 20160928, end: 20180801
  2. FERROUS SULPHATE + FOLIC ACID [Concomitant]
     Indication: Anaemia
     Dosage: 280 MILLIGRAM, TID
     Route: 065
     Dates: start: 20160929
  3. BACTRIM [Concomitant]
     Active Substance: SULFAMETHOXAZOLE\TRIMETHOPRIM
     Indication: Prophylaxis against HIV infection
     Dosage: 480 MILLIGRAM, QD
     Route: 065
  4. BACTRIM [Concomitant]
     Active Substance: SULFAMETHOXAZOLE\TRIMETHOPRIM
     Indication: Pneumocystis jirovecii pneumonia
  5. BACTRIM [Concomitant]
     Active Substance: SULFAMETHOXAZOLE\TRIMETHOPRIM
     Indication: Prophylaxis
  6. FOLATE SODIUM [Concomitant]
     Active Substance: FOLATE SODIUM
     Indication: Anaemia
     Dosage: 2.5 MILLIGRAM, QD
     Route: 065
     Dates: start: 20160929

REACTIONS (2)
  - Malaria [Not Recovered/Not Resolved]
  - Anaemia [Recovered/Resolved]

NARRATIVE: CASE EVENT DATE: 20161019
